FAERS Safety Report 23930347 (Version 1)
Quarter: 2024Q2

REPORT INFORMATION
  Report Type: Spontaneous
  Country: US (occurrence: None)
  Receive Date: 20240602
  Receipt Date: 20240602
  Transmission Date: 20240715
  Serious: No
  Sender: FDA-Public Use
  Company Number: 2024A126189

PATIENT
  Sex: Female

DRUGS (1)
  1. BYDUREON BCISE [Suspect]
     Active Substance: EXENATIDE
     Route: 055

REACTIONS (4)
  - Ageusia [Unknown]
  - Injury associated with device [Unknown]
  - Device defective [Unknown]
  - Device use issue [Unknown]
